FAERS Safety Report 4330812-4 (Version None)
Quarter: 2004Q1

REPORT INFORMATION
  Report Type: 
  Country: None (occurrence: None)
  Receive Date: 20040331
  Receipt Date: 20040317
  Transmission Date: 20041129
  Serious: Yes (Hospitalization)
  Sender: FDA-Public Use
  Company Number: USA040361820

PATIENT
  Sex: Male

DRUGS (3)
  1. HUMALOG [Suspect]
     Indication: DIABETES MELLITUS
  2. HUMULIN N [Suspect]
     Indication: DIABETES MELLITUS
  3. HUMULIN R [Suspect]
     Indication: DIABETES MELLITUS

REACTIONS (7)
  - BLOOD GLUCOSE INCREASED [None]
  - DIABETES MELLITUS INADEQUATE CONTROL [None]
  - GASTROENTERITIS VIRAL [None]
  - HYPOAESTHESIA [None]
  - KERATOCONJUNCTIVITIS SICCA [None]
  - NASOPHARYNGITIS [None]
  - PARAESTHESIA [None]
